FAERS Safety Report 6197519-2 (Version None)
Quarter: 2009Q2

REPORT INFORMATION
  Report Type: 
  Country: None (occurrence: None)
  Receive Date: 20090521
  Receipt Date: 20090512
  Transmission Date: 20091009
  Serious: Yes (Hospitalization)
  Sender: FDA-Public Use
  Company Number: US-BIOGENIDEC-2006BI018096

PATIENT
  Age: 50 Year
  Sex: Female

DRUGS (2)
  1. AVONEX [Suspect]
     Indication: MULTIPLE SCLEROSIS
     Route: 030
     Dates: start: 19990503, end: 20041231
  2. AVONEX [Suspect]
     Route: 030
     Dates: start: 20061222

REACTIONS (3)
  - CHOLECYSTITIS [None]
  - CHOLECYSTITIS INFECTIVE [None]
  - HEPATIC ENZYME INCREASED [None]
